FAERS Safety Report 17696640 (Version 3)
Quarter: 2020Q2

REPORT INFORMATION
  Report Type: Report from Study
  Country: None (occurrence: US)
  Receive Date: 20200423
  Receipt Date: 20200623
  Transmission Date: 20200714
  Serious: Yes (Hospitalization, Other)
  Sender: FDA-Public Use
  Company Number: US-ABBVIE-20K-163-3369940-00

PATIENT
  Age: 68 Year
  Sex: Male
  Weight: 81.72 kg

DRUGS (2)
  1. HUMIRA [Suspect]
     Active Substance: ADALIMUMAB
     Indication: COLITIS ULCERATIVE
     Dosage: CITRATE FREE
     Route: 058
     Dates: start: 202001, end: 202004
  2. HUMIRA [Suspect]
     Active Substance: ADALIMUMAB
     Dosage: CITRATE FREE
     Route: 058
     Dates: start: 202005

REACTIONS (13)
  - Atrial fibrillation [Unknown]
  - Dehydration [Recovered/Resolved]
  - Colitis [Unknown]
  - Hypophagia [Recovering/Resolving]
  - Fall [Unknown]
  - Weight decreased [Recovering/Resolving]
  - Malnutrition [Recovering/Resolving]
  - White blood cells urine positive [Unknown]
  - Dizziness [Recovered/Resolved]
  - Loss of consciousness [Unknown]
  - Clostridium difficile infection [Unknown]
  - Colitis ulcerative [Recovering/Resolving]
  - Ligament sprain [Unknown]

NARRATIVE: CASE EVENT DATE: 2020
